FAERS Safety Report 13760086 (Version 2)
Quarter: 2018Q3

REPORT INFORMATION
  Report Type: Spontaneous
  Country: CA (occurrence: CA)
  Receive Date: 20170717
  Receipt Date: 20180704
  Transmission Date: 20181010
  Serious: Yes (Death)
  Sender: FDA-Public Use
  Company Number: CA-PFIZER INC-2017309148

PATIENT
  Age: 78 Year
  Sex: Female

DRUGS (10)
  1. PANTOPRAZOLE [Concomitant]
     Active Substance: PANTOPRAZOLE
     Dosage: 40 MG, 1X/DAY
     Route: 048
  2. FILGRASTIM [Concomitant]
     Active Substance: FILGRASTIM
     Dosage: 300 UG, UNK
     Route: 058
     Dates: start: 20160929
  3. CELECOXIB. [Concomitant]
     Active Substance: CELECOXIB
     Dosage: 100 MG, 1X/DAY, AS NEEDED
     Route: 048
  4. IBRANCE [Suspect]
     Active Substance: PALBOCICLIB
     Dosage: 125 MG, CYCLIC 125 MG, 1X/DAYFOR 21 DAYS AND 7 DAYS OFF
     Route: 048
     Dates: start: 20170207
  5. TELMISARTAN. [Concomitant]
     Active Substance: TELMISARTAN
     Dosage: 40 MG, 1X/DAY
     Route: 048
  6. DEXAMETHASONE. [Concomitant]
     Active Substance: DEXAMETHASONE
     Dosage: 1 TAB, 2X/DAY FOR 3 DAYS PER CHEMO CYCLE
     Dates: start: 20161030
  7. ONDASETRON [Concomitant]
     Active Substance: ONDANSETRON
     Dosage: 1 TAB, 3X/DAY FOR 3 DAYS
     Dates: start: 20161030
  8. ALPRAZOLAM. [Concomitant]
     Active Substance: ALPRAZOLAM
     Dosage: 1?3 TABS EVERY NIGHT AS NEEDED
  9. NITROGLYCERIN. [Concomitant]
     Active Substance: NITROGLYCERIN
     Dosage: 0.4MH/HR PATCH, APPLY 1 PATCH AT 8AM, REMOVE AT 8PM
  10. METOPROLOL. [Concomitant]
     Active Substance: METOPROLOL
     Dosage: 50 MG, 2X/DAY
     Route: 048

REACTIONS (1)
  - Death [Fatal]

NARRATIVE: CASE EVENT DATE: 201706
